FAERS Safety Report 24681565 (Version 3)
Quarter: 2025Q1

REPORT INFORMATION
  Report Type: Spontaneous
  Country: US (occurrence: US)
  Receive Date: 20241130
  Receipt Date: 20250103
  Transmission Date: 20250409
  Serious: No
  Sender: ROCHE
  Company Number: US-ROCHE-10000142890

PATIENT
  Age: 58 Year
  Sex: Male
  Weight: 106.59 kg

DRUGS (10)
  1. XOLAIR [Suspect]
     Active Substance: OMALIZUMAB
     Indication: Idiopathic urticaria
     Dosage: STRENGTH: 300MG/2ML
     Route: 058
     Dates: start: 202407, end: 202410
  2. XOLAIR [Suspect]
     Active Substance: OMALIZUMAB
     Indication: Mastocytosis
     Dosage: STRENGTH: 300MG/2ML
     Route: 058
     Dates: start: 202411
  3. XOLAIR [Suspect]
     Active Substance: OMALIZUMAB
     Dosage: STRENGTH: 300MG/2ML
     Route: 058
     Dates: start: 202411
  4. PREDNISONE [Concomitant]
     Active Substance: PREDNISONE
  5. HYDROXYZINE [Concomitant]
     Active Substance: HYDROXYZINE HYDROCHLORIDE
  6. DOXEPIN [Concomitant]
     Active Substance: DOXEPIN
  7. LEVOTHYROXINE [Concomitant]
     Active Substance: LEVOTHYROXINE
  8. SUMATRIPTAN [Concomitant]
     Active Substance: SUMATRIPTAN
  9. FAMOTIDINE [Concomitant]
     Active Substance: FAMOTIDINE
  10. CROMOLIN [Concomitant]

REACTIONS (5)
  - Device defective [Unknown]
  - Off label use [Unknown]
  - Urticaria [Not Recovered/Not Resolved]
  - Dyspnoea [Unknown]
  - Off label use [Unknown]

NARRATIVE: CASE EVENT DATE: 20240701
